FAERS Safety Report 14664688 (Version 1)
Quarter: 2018Q1

REPORT INFORMATION
  Report Type: Spontaneous
  Country: PR (occurrence: PR)
  Receive Date: 20180319
  Receipt Date: 20180319
  Transmission Date: 20180509
  Serious: Yes (Hospitalization, Other)
  Sender: FDA-Public Use
  Company Number: None

PATIENT
  Age: 27 Year
  Sex: Female
  Weight: 57.6 kg

DRUGS (1)
  1. MIRENA [Suspect]
     Active Substance: LEVONORGESTREL
     Indication: CONTRACEPTION
     Dosage: ?          OTHER ROUTE:IUD?
     Route: 015
     Dates: start: 20161010, end: 20171219

REACTIONS (6)
  - Menstruation irregular [None]
  - Bedridden [None]
  - Vaginal haemorrhage [None]
  - Uterine adhesions [None]
  - Pelvic pain [None]
  - Ovarian cyst [None]

NARRATIVE: CASE EVENT DATE: 20171219
